FAERS Safety Report 4399985-1 (Version None)
Quarter: 2004Q3

REPORT INFORMATION
  Report Type: 
  Country: None (occurrence: None)
  Receive Date: 20040716
  Receipt Date: 20040706
  Transmission Date: 20050211
  Serious: Yes (Life-Threatening, Hospitalization)
  Sender: FDA-Public Use
  Company Number: 2004219146JP

PATIENT
  Age: 30 Year
  Sex: Female
  Weight: 159 kg

DRUGS (2)
  1. HALCION [Suspect]
     Dosage: 25 MG, QD, ORAL
     Route: 048
     Dates: start: 20040614, end: 20040614
  2. CHLORPROMAZINE HCL [Suspect]
     Dosage: 50 TABLETS, ORAL
     Route: 048

REACTIONS (9)
  - DIALYSIS [None]
  - DRUG TOXICITY [None]
  - GENERAL PHYSICAL HEALTH DETERIORATION [None]
  - GLOSSOPTOSIS [None]
  - LOSS OF CONSCIOUSNESS [None]
  - MULTIPLE DRUG OVERDOSE [None]
  - PYREXIA [None]
  - RESPIRATORY FAILURE [None]
  - SUICIDE ATTEMPT [None]
